FAERS Safety Report 7665729 (Version 2)
Quarter: 2019Q4

REPORT INFORMATION
  Report Type: Spontaneous
  Country: KR (occurrence: KR)
  Receive Date: 20101112
  Receipt Date: 20191107
  Transmission Date: 20200122
  Serious: Yes (Other)
  Sender: FDA-Public Use
  Company Number: ES-SANOFI-AVENTIS-2010SA066952

PATIENT
  Age: 55 Year
  Sex: Female

DRUGS (3)
  1. FLUOXETINE [Concomitant]
     Active Substance: FLUOXETINE HYDROCHLORIDE
     Indication: AFFECTIVE DISORDER
     Dosage: UNK UNK,UNK
     Route: 065
  2. ZOLPIDEM TARTRATE. [Suspect]
     Active Substance: ZOLPIDEM TARTRATE
     Indication: INSOMNIA
     Dosage: 10 MG,HS
     Route: 048
  3. ALPRAZOLAM. [Concomitant]
     Active Substance: ALPRAZOLAM
     Indication: AFFECTIVE DISORDER
     Dosage: UNK UNK,UNK
     Route: 065

REACTIONS (6)
  - Sleep talking [Recovered/Resolved]
  - Obesity [Recovered/Resolved]
  - Incorrect product administration duration [Recovered/Resolved]
  - Sleep-related eating disorder [Recovered/Resolved]
  - Amnesia [Unknown]
  - Abnormal sleep-related event [Recovered/Resolved]
